FAERS Safety Report 9322419 (Version 1)
Quarter: 2013Q2

REPORT INFORMATION
  Report Type: Spontaneous
  Country: US (occurrence: US)
  Receive Date: 20130531
  Receipt Date: 20130531
  Transmission Date: 20140414
  Serious: No
  Sender: FDA-Public Use
  Company Number: US-PFIZER INC-2013166336

PATIENT
  Age: 58 Year
  Sex: Male
  Weight: 102.4 kg

DRUGS (12)
  1. CHANTIX [Suspect]
     Indication: SMOKING CESSATION THERAPY
     Dosage: 0.5 MG, 1X/DAY
     Route: 048
     Dates: start: 20130522
  2. CHANTIX [Suspect]
     Dosage: UNK
     Route: 048
  3. KLONOPIN [Concomitant]
     Dosage: 0.5 MG, 1X/DAY
  4. LOVENOX [Concomitant]
     Dosage: 100 MG, 2X/DAY (TWO INJECTIONS IN A DAY)
  5. PRILOSEC [Concomitant]
     Dosage: 20 MG, 1X/DAY
  6. LASIX [Concomitant]
     Dosage: 40 MG, 2X/DAY
  7. GLIPIZIDE [Concomitant]
     Dosage: 5 MG, 1X/DAY
  8. CARDIZEM [Concomitant]
     Dosage: 240 MG, 2X/DAY
  9. METFORMIN [Concomitant]
     Dosage: 500 MG, 2X/DAY
  10. FOLIC ACID [Concomitant]
     Dosage: 1 MG, 1X/DAY
  11. METOPROLOL [Concomitant]
     Dosage: 25 MG, 2X/DAY
  12. INSULIN [Concomitant]
     Dosage: UNK

REACTIONS (3)
  - Asthenia [Not Recovered/Not Resolved]
  - Fatigue [Not Recovered/Not Resolved]
  - Hypersomnia [Not Recovered/Not Resolved]
